FAERS Safety Report 9680680 (Version 1)
Quarter: 2013Q4

REPORT INFORMATION
  Report Type: Spontaneous
  Country: DE (occurrence: DE)
  Receive Date: 20131111
  Receipt Date: 20131111
  Transmission Date: 20140711
  Serious: Yes (Other)
  Sender: FDA-Public Use
  Company Number: DE-JNJFOC-20131100792

PATIENT
  Age: 42 Year
  Sex: Female

DRUGS (4)
  1. CONCERTA [Suspect]
     Indication: PRODUCT USED FOR UNKNOWN INDICATION
     Dosage: ON METHYLPHENINDATE HYDROCHLORIDE PRECREPTION
     Route: 048
  2. CONCERTA [Suspect]
     Indication: PRODUCT USED FOR UNKNOWN INDICATION
     Dosage: 18 MG X 60 TABLETS
     Route: 048
     Dates: start: 20131102, end: 20131102
  3. SEROQUEL [Suspect]
     Indication: PRODUCT USED FOR UNKNOWN INDICATION
     Dosage: 50 MG X 20 TABLETS
     Route: 048
     Dates: start: 20131102, end: 20131102
  4. ABILIFY [Suspect]
     Indication: PRODUCT USED FOR UNKNOWN INDICATION
     Dosage: 5 MG X 28 TABLETS
     Route: 048
     Dates: start: 20131102, end: 20131102

REACTIONS (3)
  - Suicide attempt [Unknown]
  - Intentional overdose [Unknown]
  - Hypotension [Unknown]
